FAERS Safety Report 9032605 (Version 2)
Quarter: 2013Q2

REPORT INFORMATION
  Report Type: Spontaneous
  Country: IT (occurrence: IT)
  Receive Date: 20130122
  Receipt Date: 20130405
  Transmission Date: 20140414
  Serious: Yes (Death, Other)
  Sender: FDA-Public Use
  Company Number: PHHY2013IT003524

PATIENT
  Sex: Female

DRUGS (3)
  1. ZOMETA [Suspect]
     Indication: PLASMA CELL MYELOMA
     Dosage: 4 MG POWDER AND SOLVENT FOR SOLUTION, MONTHLY
     Route: 042
     Dates: start: 20030414, end: 20040610
  2. AREDIA [Suspect]
     Indication: PLASMA CELL MYELOMA
     Dosage: 90 MG, QMO
     Route: 042
     Dates: start: 20010314, end: 20030318
  3. AREDIA [Suspect]
     Dosage: 90 MG, MONTHLY
     Route: 042
     Dates: start: 20040126, end: 20051118

REACTIONS (2)
  - Death [Fatal]
  - Osteonecrosis of jaw [Unknown]
